FAERS Safety Report 4537060-3 (Version None)
Quarter: 2004Q4

REPORT INFORMATION
  Report Type: 
  Country: None (occurrence: None)
  Receive Date: 20041223
  Receipt Date: 20041105
  Transmission Date: 20050328
  Serious: Yes (Other)
  Sender: FDA-Public Use
  Company Number: US-BRISTOL-MYERS SQUIBB COMPANY-12762860

PATIENT
  Age: 51 Year
  Sex: Male
  Weight: 74 kg

DRUGS (4)
  1. REYATAZ [Suspect]
     Indication: HIV INFECTION
     Dates: start: 20030101, end: 20041001
  2. TRIZIVIR [Concomitant]
  3. DAPSONE [Concomitant]
  4. ALLEGRA [Concomitant]

REACTIONS (3)
  - BLOOD TRIGLYCERIDES INCREASED [None]
  - HYPERBILIRUBINAEMIA [None]
  - LIVER FUNCTION TEST ABNORMAL [None]
